FAERS Safety Report 6186610-2 (Version None)
Quarter: 2009Q2

REPORT INFORMATION
  Report Type: 
  Country: None (occurrence: None)
  Receive Date: 20090512
  Receipt Date: 20090505
  Transmission Date: 20091009
  Serious: Yes (Hospitalization)
  Sender: FDA-Public Use
  Company Number: US-AVENTIS-200914661GDDC

PATIENT
  Age: 55 Year
  Sex: Female
  Weight: 110.9 kg

DRUGS (25)
  1. DOCETAXEL [Suspect]
     Route: 042
     Dates: start: 20081120, end: 20090421
  2. BEVACIZUMAB [Suspect]
     Route: 042
     Dates: start: 20081120, end: 20090421
  3. OMEPRAZOLE [Concomitant]
     Route: 048
     Dates: start: 20050201
  4. LISINOPRIL [Concomitant]
     Indication: HYPERTENSION
     Dosage: DOSE: 20/25
     Route: 048
     Dates: start: 20030201
  5. LISINOPRIL [Concomitant]
     Route: 048
     Dates: start: 20090112
  6. LEVOTHYROXINE SODIUM [Concomitant]
     Indication: HYPOTHYROIDISM
     Route: 048
     Dates: start: 19880101
  7. BESYLATE AMLODIPINE [Concomitant]
     Indication: HYPERTENSION
     Route: 048
     Dates: start: 19980101
  8. ETODOLAC [Concomitant]
     Dosage: DOSE: 400 TID
     Route: 048
     Dates: start: 20080501
  9. METFORMIN HCL [Concomitant]
     Route: 048
     Dates: start: 20050201
  10. METFORMIN HCL [Concomitant]
     Route: 048
     Dates: start: 20090113
  11. TYLENOL [Concomitant]
     Dosage: DOSE: 500 X 2 TID
     Route: 048
     Dates: start: 20081125
  12. ROBITUSSIN [Concomitant]
     Dosage: DOSE: 100/8 QID; DOSE UNIT: MILLIGRAM PER MILLILITRE
     Route: 048
     Dates: start: 20081126
  13. ROBITUSSIN [Concomitant]
     Dosage: DOSE QUANTITY: 1; DOSE UNIT: TABLESPOON
     Dates: start: 20090501
  14. LOMOTIL                            /00034001/ [Concomitant]
     Route: 048
     Dates: start: 20081219
  15. LOMOTIL                            /00034001/ [Concomitant]
     Route: 048
     Dates: start: 20090421
  16. DEXAMETHASONE 4MG TAB [Concomitant]
     Indication: PREMEDICATION
     Dosage: DOSE: 8 MG 12 HOURS BEFORE AND AFTER CHEMOTHERAPY
     Route: 048
     Dates: start: 20081119, end: 20090217
  17. DEXAMETHASONE 4MG TAB [Concomitant]
     Dosage: DOSE: 4 MG 12 HOURS BEFORE AND AFTER CHEMOTHERAPY
     Route: 048
     Dates: start: 20090217
  18. ADVEL [Concomitant]
     Route: 048
     Dates: start: 20090220
  19. KEFLEX [Concomitant]
     Dosage: DOSE: 500 X 10 DAYS
     Route: 048
     Dates: start: 20090223, end: 20090305
  20. LORTAB [Concomitant]
     Indication: PAIN
     Dosage: DOSE: 5/500
     Route: 048
     Dates: start: 20090128
  21. CIPROFLOXACIN HCL [Concomitant]
     Dosage: DOSE: 500 MG X 5 DAYS
     Route: 048
     Dates: start: 20090427, end: 20090503
  22. CIPROFLOXACIN HCL [Concomitant]
     Indication: PRODUCTIVE COUGH
     Dosage: DOSE: 500 MG X 5 DAYS
     Route: 048
     Dates: start: 20090427, end: 20090503
  23. MUCINEX [Concomitant]
     Indication: COUGH
     Dosage: DOSE: 1 TABLET QID
     Route: 048
     Dates: start: 20090427, end: 20090430
  24. TESSALON [Concomitant]
     Dosage: DOSE: 200 X 10 DAYS
     Route: 048
     Dates: start: 20090430
  25. AMOXICILLIN [Concomitant]
     Dosage: DOSE: 500 MG X 10 DAYS
     Route: 048
     Dates: start: 20090501

REACTIONS (3)
  - ATAXIA [None]
  - DYSPNOEA [None]
  - PLEURAL EFFUSION [None]
